FAERS Safety Report 15493595 (Version 1)
Quarter: 2018Q4

REPORT INFORMATION
  Report Type: Spontaneous
  Country: US (occurrence: US)
  Receive Date: 20181004
  Receipt Date: 20181004
  Transmission Date: 20190205
  Serious: Yes (Hospitalization)
  Sender: FDA-Public Use
  Company Number: None

PATIENT
  Age: 70 Year
  Sex: Male
  Weight: 96 kg

DRUGS (1)
  1. GABAPENTIN. [Suspect]
     Active Substance: GABAPENTIN
     Indication: PAIN
     Route: 048
     Dates: start: 20171201, end: 20180502

REACTIONS (5)
  - Coordination abnormal [None]
  - Balance disorder [None]
  - Sedation [None]
  - Dysarthria [None]
  - Dizziness [None]

NARRATIVE: CASE EVENT DATE: 20180502
